FAERS Safety Report 22933914 (Version 2)
Quarter: 2024Q3

REPORT INFORMATION
  Report Type: Spontaneous
  Country: US (occurrence: None)
  Receive Date: 20230912
  Receipt Date: 20240906
  Transmission Date: 20241017
  Serious: No
  Sender: DOMPE FARMACEUTICI
  Company Number: US-FARMAPROD-202304-0941

PATIENT
  Age: 74 Year
  Sex: Female

DRUGS (18)
  1. OXERVATE [Suspect]
     Active Substance: CENEGERMIN-BKBJ
     Indication: Neurotrophic keratopathy
     Route: 047
     Dates: start: 20230405, end: 20230529
  2. OXERVATE [Suspect]
     Active Substance: CENEGERMIN-BKBJ
  3. OXERVATE [Suspect]
     Active Substance: CENEGERMIN-BKBJ
  4. ERYTHROMYCIN [Concomitant]
     Active Substance: ERYTHROMYCIN
  5. PREDNISOLONE ACETATE [Concomitant]
     Active Substance: PREDNISOLONE ACETATE
  6. AZOPT [Concomitant]
     Active Substance: BRINZOLAMIDE
  7. COMBIGAN [Concomitant]
     Active Substance: BRIMONIDINE TARTRATE\TIMOLOL MALEATE
     Dosage: 0.2%-0.5%
  8. VITAMINS [Concomitant]
     Active Substance: VITAMINS
  9. VITAMIN D3 [Concomitant]
     Active Substance: CHOLECALCIFEROL
  10. LEVOTHYROXINE [Concomitant]
     Active Substance: LEVOTHYROXINE\LEVOTHYROXINE SODIUM
  11. HYDROCHLOROTHIAZIDE [Concomitant]
     Active Substance: HYDROCHLOROTHIAZIDE
  12. AMLODIPINE BESYLATE [Concomitant]
     Active Substance: AMLODIPINE BESYLATE
  13. VALACYCLOVIR [Concomitant]
     Active Substance: VALACYCLOVIR HYDROCHLORIDE
  14. SYSTANE COMPLETE [Concomitant]
     Active Substance: PROPYLENE GLYCOL
  15. ZIRGAN [Concomitant]
     Active Substance: GANCICLOVIR
  16. TRAVATAN Z [Concomitant]
     Active Substance: TRAVOPROST
  17. METFORMIN HYDROCHLORIDE [Concomitant]
     Active Substance: METFORMIN HYDROCHLORIDE
     Dosage: EXTENDED RELEASE FOR 24 HOURS
  18. REGENER-EYES [Concomitant]

REACTIONS (8)
  - Accidental overdose [Unknown]
  - Device use issue [Unknown]
  - Eyelid pain [Not Recovered/Not Resolved]
  - Corneal abrasion [Not Recovered/Not Resolved]
  - Eye pain [Unknown]
  - Eye inflammation [Unknown]
  - Eye irritation [Unknown]
  - Swelling of eyelid [Unknown]

NARRATIVE: CASE EVENT DATE: 20230405
